FAERS Safety Report 18658399 (Version 2)
Quarter: 2021Q4

REPORT INFORMATION
  Report Type: Spontaneous
  Country: US (occurrence: US)
  Receive Date: 20201224
  Receipt Date: 20211019
  Transmission Date: 20220303
  Serious: No
  Sender: FDA-Public Use
  Company Number: US-HORIZON-2020HZN02716

PATIENT
  Sex: Male

DRUGS (2)
  1. PROCYSBI [Suspect]
     Active Substance: CYSTEAMINE BITARTRATE
     Indication: Amino acid metabolism disorder
     Dosage: TAKE TWO 300MG GRANULE PACKETS ALONG WITH TWO 75MG PACKETS ORAL IN THE MORNING
  2. PROCYSBI [Suspect]
     Active Substance: CYSTEAMINE BITARTRATE
     Indication: Amino acid metabolism disorder
     Dosage: TAKE TEN 75MG CAPSULES ALONG WITH TWO 25MG CAPSULES ORAL IN THE EVENING

REACTIONS (1)
  - Vomiting [Unknown]
